FAERS Safety Report 22072461 (Version 1)
Quarter: 2023Q1

REPORT INFORMATION
  Report Type: Spontaneous
  Country: US (occurrence: US)
  Receive Date: 20230308
  Receipt Date: 20230308
  Transmission Date: 20230418
  Serious: Yes (Other)
  Sender: FDA-Public Use
  Company Number: US-AMGEN-USASP2023038444

PATIENT
  Age: 77 Year
  Sex: Female

DRUGS (1)
  1. AIMOVIG [Suspect]
     Active Substance: ERENUMAB-AOOE
     Indication: Migraine
     Dosage: 70 MILLIGRAM, QMO
     Route: 065
     Dates: start: 20230301

REACTIONS (5)
  - Diabetes mellitus [Unknown]
  - Headache [Unknown]
  - Wrong technique in product usage process [Unknown]
  - Device difficult to use [Unknown]
  - Drug dose omission by device [Unknown]

NARRATIVE: CASE EVENT DATE: 20230301
